FAERS Safety Report 7437183-5 (Version None)
Quarter: 2011Q2

REPORT INFORMATION
  Report Type: 
  Country: None (occurrence: None)
  Receive Date: 20110426
  Receipt Date: 20090930
  Transmission Date: 20111010
  Serious: Yes (Other)
  Sender: FDA-Public Use
  Company Number: US-BAYER-2011-005783

PATIENT
  Age: 57 Year
  Sex: Male
  Weight: 84.5 kg

DRUGS (16)
  1. TRASYLOL [Suspect]
     Dosage: 100 ML CARDIOPULMONARY BYPASS PRIME
     Route: 042
     Dates: start: 20050209, end: 20050209
  2. COREG [Concomitant]
     Dosage: 3.125 MG, BID
     Route: 048
  3. PROPOFOL [Concomitant]
     Dosage: UNK
     Route: 042
     Dates: start: 20050209, end: 20050209
  4. TRASYLOL [Suspect]
     Indication: CORONARY ARTERY BYPASS
     Dosage: 1 ML ONCE (INITIAL)
     Route: 042
     Dates: start: 20050209, end: 20050209
  5. ZOCOR [Concomitant]
     Dosage: 80 MG, QD (BEFORE AND AFTER SURGERY)
     Route: 048
  6. TRASYLOL [Suspect]
     Dosage: 100 ML (LOADING)
     Route: 042
     Dates: start: 20050209, end: 20050209
  7. GLUCOVANCE [Concomitant]
     Dosage: 5-500 MG DAILY
     Route: 048
  8. METOPROLOL [Concomitant]
     Dosage: 5 ML, UNK
     Route: 042
     Dates: start: 20050209, end: 20050209
  9. ZINACEF [Concomitant]
     Dosage: 1.5 G, UNK
     Route: 042
     Dates: start: 20050209
  10. AVALIDE [Concomitant]
     Dosage: 300-12.5 MG DAILY
     Route: 048
  11. FENTANYL [Concomitant]
     Dosage: 250 UNK
     Route: 042
     Dates: start: 20050209, end: 20050209
  12. PRECOSE [Concomitant]
     Dosage: 50 MG, TID (BEFORE AND AFTER SURGERY)
     Route: 048
  13. PRILOSEC [Concomitant]
  14. LIDOCAINE [Concomitant]
     Dosage: 100 UNK
     Route: 042
     Dates: start: 20050209, end: 20050209
  15. AVANDIA [Concomitant]
     Dosage: 8 MG, TID (BEFORE AND AFTER SURGERY)
     Route: 048
  16. VERSED [Concomitant]
     Dosage: UNK
     Route: 042
     Dates: start: 20050209, end: 20050209

REACTIONS (13)
  - RENAL FAILURE [None]
  - DEPRESSION [None]
  - FEAR OF DEATH [None]
  - FEAR [None]
  - EMOTIONAL DISTRESS [None]
  - RENAL INJURY [None]
  - INJURY [None]
  - PAIN [None]
  - UNEVALUABLE EVENT [None]
  - MULTI-ORGAN FAILURE [None]
  - ANXIETY [None]
  - NERVOUSNESS [None]
  - MENTAL DISORDER [None]
